FAERS Safety Report 22285981 (Version 2)
Quarter: 2024Q1

REPORT INFORMATION
  Report Type: Other
  Country: PA (occurrence: PA)
  Receive Date: 20230505
  Receipt Date: 20240123
  Transmission Date: 20240410
  Serious: No
  Sender: FDA-Public Use
  Company Number: PA-TOLMAR, INC.-23PA040362

PATIENT
  Age: 90 Year
  Sex: Male

DRUGS (2)
  1. ELIGARD [Suspect]
     Active Substance: LEUPROLIDE ACETATE
     Indication: Prostate cancer
     Dosage: 45 MILLIGRAM, Q 6 MONTH
     Route: 058
     Dates: start: 202205
  2. EXFORGE [Concomitant]
     Active Substance: AMLODIPINE BESYLATE\VALSARTAN
     Indication: Blood pressure abnormal
     Dosage: 1 CAPSULE QD

REACTIONS (4)
  - Emotional disorder [Not Recovered/Not Resolved]
  - Intentional dose omission [Unknown]
  - Feeling abnormal [Unknown]
  - Hyperhidrosis [Not Recovered/Not Resolved]

NARRATIVE: CASE EVENT DATE: 20220501
